FAERS Safety Report 8115410-9 (Version None)
Quarter: 2012Q1

REPORT INFORMATION
  Report Type: 
  Country: None (occurrence: None)
  Receive Date: 20120206
  Receipt Date: 20120131
  Transmission Date: 20120608
  Serious: Yes (Hospitalization)
  Sender: FDA-Public Use
  Company Number: US-JNJFOC-20120200609

PATIENT
  Age: 39 Year
  Sex: Male
  Weight: 68.04 kg

DRUGS (4)
  1. INVEGA SUSTENNA [Suspect]
     Route: 030
     Dates: start: 20111228, end: 20111228
  2. ABILIFY [Concomitant]
     Indication: SCHIZOAFFECTIVE DISORDER
     Route: 048
  3. INVEGA SUSTENNA [Suspect]
     Indication: SCHIZOAFFECTIVE DISORDER
     Route: 030
  4. COGENTIN [Concomitant]
     Indication: ADVERSE DRUG REACTION
     Route: 048

REACTIONS (1)
  - MENTAL DISORDER [None]
